FAERS Safety Report 12699638 (Version 1)
Quarter: 2016Q3

REPORT INFORMATION
  Report Type: Spontaneous
  Country: BR (occurrence: BR)
  Receive Date: 20160830
  Receipt Date: 20160830
  Transmission Date: 20161109
  Serious: Yes (Other)
  Sender: FDA-Public Use
  Company Number: BR-TORRENT-00003546

PATIENT
  Age: 59 Year
  Sex: Female
  Weight: 73 kg

DRUGS (6)
  1. ATENOLOL. [Concomitant]
     Active Substance: ATENOLOL
     Indication: ARRHYTHMIA
     Dosage: ONCE DAILY/ ORAL
     Route: 048
     Dates: start: 201608
  2. CLONAZEPAM. [Concomitant]
     Active Substance: CLONAZEPAM
     Indication: SEDATIVE THERAPY
     Dosage: ONCE DAILY/ ORAL
     Route: 048
  3. SERENATA [Suspect]
     Active Substance: SERTRALINE HYDROCHLORIDE
     Indication: DEPRESSION
     Dosage: ONCE DAILY/ ORAL
     Route: 048
     Dates: start: 201607, end: 20160817
  4. LEVOTHYROXINE. [Concomitant]
     Active Substance: LEVOTHYROXINE
     Indication: HYPOTHYROIDISM
     Dosage: ONCE DAILY/ ORAL
     Route: 048
     Dates: start: 2013
  5. ISOFLAVONE [Concomitant]
     Active Substance: ISOFLAVONE
     Indication: MENOPAUSE
     Dosage: ONCE DAILY/ ORAL
     Route: 048
     Dates: start: 2011
  6. LEVOZINE [Concomitant]
     Indication: SEDATIVE THERAPY
     Dosage: ONCE DAILY/ ORAL
     Route: 048

REACTIONS (4)
  - Blood cholesterol increased [Not Recovered/Not Resolved]
  - Arrhythmia [Unknown]
  - Chest pain [Recovered/Resolved]
  - Blood triglycerides increased [Not Recovered/Not Resolved]

NARRATIVE: CASE EVENT DATE: 2016
